FAERS Safety Report 15268565 (Version 2)
Quarter: 2018Q3

REPORT INFORMATION
  Report Type: Spontaneous
  Country: TH (occurrence: TH)
  Receive Date: 20180812
  Receipt Date: 20180813
  Transmission Date: 20181010
  Serious: Yes (Other)
  Sender: FDA-Public Use
  Company Number: PHHY2018TH037104

PATIENT
  Age: 32 Year
  Sex: Female

DRUGS (1)
  1. KISQALI [Suspect]
     Active Substance: RIBOCICLIB
     Indication: BREAST CANCER METASTATIC
     Dosage: 600 MG, 3 WEEK ON 1 WEEK OFF
     Route: 065

REACTIONS (3)
  - Electrocardiogram T wave abnormal [Unknown]
  - Myocardial ischaemia [Unknown]
  - Electrocardiogram QT prolonged [Recovered/Resolved]
